FAERS Safety Report 16874258 (Version 1)
Quarter: 2019Q4

REPORT INFORMATION
  Report Type: Spontaneous
  Country: KR (occurrence: KR)
  Receive Date: 20191001
  Receipt Date: 20191001
  Transmission Date: 20200122
  Serious: Yes (Other)
  Sender: FDA-Public Use
  Company Number: KR-GUERBET-KR-20190044

PATIENT
  Age: 53 Year
  Sex: Male

DRUGS (1)
  1. LIPIODOL [Suspect]
     Active Substance: ETHIODIZED OIL
     Indication: HAEMOSTASIS
     Route: 065

REACTIONS (5)
  - Pyrexia [Recovering/Resolving]
  - Thrombocytopenia [Recovering/Resolving]
  - Hepatic enzyme increased [Unknown]
  - Abdominal pain [Unknown]
  - Product use in unapproved indication [Unknown]
